FAERS Safety Report 9757573 (Version 2)
Quarter: 2013Q4

REPORT INFORMATION
  Report Type: Report from Study
  Country: US (occurrence: US)
  Receive Date: 20131216
  Receipt Date: 20131224
  Transmission Date: 20140711
  Serious: Yes (Other)
  Sender: FDA-Public Use
  Company Number: US-009507513-1312USA005353

PATIENT
  Sex: 0

DRUGS (6)
  1. REBETOL [Suspect]
     Indication: HEPATITIS C
     Dosage: IN BPR GROUP, 200 MG, TIW
     Route: 048
  2. REBETOL [Suspect]
     Dosage: IN TPR GROUP, 1 IN 1 DAY, 200MG DAILY(12.5%), TWICE WEEKLY(50%), THRICE WEEKLY (37.5%)
     Route: 048
  3. VICTRELIS [Suspect]
     Indication: HEPATITIS C
     Dosage: IN BPR GROUP, 800 MG, TID
     Route: 048
  4. PEGINTERFERON ALFA-2A [Suspect]
     Indication: HEPATITIS C
     Dosage: IN BPR GROUP, 180 MICROGRAM, QW,
  5. PEGINTERFERON ALFA-2A [Suspect]
     Dosage: IN TPR GROUP, 135 MICROGRAM, 1 IN 1 WEEK
  6. TELAPREVIR [Suspect]
     Indication: HEPATITIS C
     Dosage: IN TPR GROUP, 750 MG, TID

REACTIONS (1)
  - Anaemia [Unknown]
